FAERS Safety Report 8484269-2 (Version None)
Quarter: 2012Q2

REPORT INFORMATION
  Report Type: 
  Country: None (occurrence: None)
  Receive Date: 20120625
  Receipt Date: 20120506
  Transmission Date: 20120825
  Serious: Yes (Death, Hospitalization, Other)
  Sender: FDA-Public Use
  Company Number: US-2012-10545

PATIENT
  Age: 60 Year
  Sex: Male

DRUGS (1)
  1. SAMSCA [Suspect]
     Dosage: 15 MG MILLIGRAM (S), DAILY DOSE, ORAL, 30 MG, MILIGRAMS (S), DAILY DOSE, ORAL
     Route: 048

REACTIONS (4)
  - CONDITION AGGRAVATED [None]
  - CARDIAC FAILURE CONGESTIVE [None]
  - BLOOD SODIUM INCREASED [None]
  - NO THERAPEUTIC RESPONSE [None]
